FAERS Safety Report 20496976 (Version 2)
Quarter: 2022Q1

REPORT INFORMATION
  Report Type: Spontaneous
  Country: US (occurrence: US)
  Receive Date: 20220221
  Receipt Date: 20220301
  Transmission Date: 20220423
  Serious: Yes (Other)
  Sender: FDA-Public Use
  Company Number: US-PFIZER INC-202200284931

PATIENT
  Age: 23 Year
  Sex: Male

DRUGS (2)
  1. ZYVOX [Suspect]
     Active Substance: LINEZOLID
     Dosage: 600 MG, 2X/DAY (TAKE 1 TABLET BY MOUTH 2 TIMES DAILY FOR 14 DAYS)
     Route: 048
  2. ZYVOX [Suspect]
     Active Substance: LINEZOLID
     Dosage: 600 MG, 2X/DAY (2 (TWO) TIMES DAILY FOR 6 DAYS; QUANTITY 12)
     Route: 048

REACTIONS (1)
  - Brain operation [Unknown]
